FAERS Safety Report 6466560-4 (Version None)
Quarter: 2009Q4

REPORT INFORMATION
  Report Type: 
  Country: None (occurrence: None)
  Receive Date: 20091201
  Receipt Date: 20091201
  Transmission Date: 20100525
  Serious: Yes (Life-Threatening, Hospitalization, Other)
  Sender: FDA-Public Use
  Company Number: None

PATIENT
  Age: 41 Year
  Sex: Female
  Weight: 65.7716 kg

DRUGS (2)
  1. MIRENA [Suspect]
     Indication: MENOPAUSAL SYMPTOMS
     Dates: start: 20080520, end: 20090926
  2. MIRENA [Suspect]
     Indication: MENORRHAGIA
     Dates: start: 20080520, end: 20090926

REACTIONS (5)
  - ABDOMINAL PAIN [None]
  - DRUG HYPERSENSITIVITY [None]
  - EOSINOPHIL COUNT INCREASED [None]
  - IMPAIRED WORK ABILITY [None]
  - MALAISE [None]
